FAERS Safety Report 4338843-5 (Version None)
Quarter: 2004Q2

REPORT INFORMATION
  Report Type: 
  Country: None (occurrence: None)
  Receive Date: 20040414
  Receipt Date: 20040217
  Transmission Date: 20050107
  Serious: Yes (Death, Hospitalization)
  Sender: FDA-Public Use
  Company Number: CM-MERCK-0402USA01218

PATIENT
  Age: 65 Year
  Sex: Male

DRUGS (1)
  1. STROMECTOL [Suspect]
     Route: 048
     Dates: start: 20040210, end: 20040210

REACTIONS (14)
  - ABNORMAL BEHAVIOUR [None]
  - APHASIA [None]
  - ASTHENIA [None]
  - DEATH [None]
  - DECUBITUS ULCER [None]
  - DEPRESSED LEVEL OF CONSCIOUSNESS [None]
  - DISORIENTATION [None]
  - FATIGUE [None]
  - LOWER RESPIRATORY TRACT INFECTION [None]
  - PULMONARY CONGESTION [None]
  - PYREXIA [None]
  - RESPIRATORY TRACT CONGESTION [None]
  - SUDDEN DEATH [None]
  - URINARY INCONTINENCE [None]
